FAERS Safety Report 22076781 (Version 2)
Quarter: 2023Q1

REPORT INFORMATION
  Report Type: Spontaneous
  Country: MA (occurrence: MA)
  Receive Date: 20230309
  Receipt Date: 20230316
  Transmission Date: 20230418
  Serious: Yes (Other)
  Sender: FDA-Public Use
  Company Number: MA-MLMSERVICE-20230301-4135117-1

PATIENT
  Age: 60 Year

DRUGS (3)
  1. BRIMONIDINE [Suspect]
     Active Substance: BRIMONIDINE TARTRATE
     Indication: Open angle glaucoma
     Route: 065
  2. DORZOLAMIDE [Concomitant]
     Active Substance: DORZOLAMIDE
     Indication: Open angle glaucoma
  3. TIMOLOL [Concomitant]
     Active Substance: TIMOLOL
     Indication: Open angle glaucoma

REACTIONS (2)
  - Iridocyclitis [Unknown]
  - Ocular hypertension [Unknown]
